FAERS Safety Report 12628724 (Version 1)
Quarter: 2016Q3

REPORT INFORMATION
  Report Type: Spontaneous
  Country: IT (occurrence: IT)
  Receive Date: 20160808
  Receipt Date: 20160808
  Transmission Date: 20161109
  Serious: Yes (Hospitalization)
  Sender: FDA-Public Use
  Company Number: IT-ROCHE-1808623

PATIENT
  Age: 74 Year
  Sex: Male

DRUGS (6)
  1. NEUPRO [Concomitant]
     Active Substance: ROTIGOTINE
     Indication: PARKINSON^S DISEASE
  2. STALEVO (ITALY) [Concomitant]
     Indication: PARKINSON^S DISEASE
  3. OMNIC [Concomitant]
     Active Substance: TAMSULOSIN HYDROCHLORIDE
     Indication: BENIGN PROSTATIC HYPERPLASIA
  4. RIVOTRIL [Suspect]
     Active Substance: CLONAZEPAM
     Indication: PARKINSON^S DISEASE
     Route: 065
  5. CARDIOASPIRIN [Concomitant]
     Active Substance: ASPIRIN
     Indication: ATRIAL FIBRILLATION
  6. SINEMET [Concomitant]
     Active Substance: CARBIDOPA\LEVODOPA
     Indication: PARKINSON^S DISEASE

REACTIONS (4)
  - Injury [Unknown]
  - Balance disorder [Unknown]
  - Gait disturbance [Unknown]
  - Muscle rigidity [Unknown]

NARRATIVE: CASE EVENT DATE: 20160527
